FAERS Safety Report 15793245 (Version 2)
Quarter: 2019Q1

REPORT INFORMATION
  Report Type: Report from Study
  Country: US (occurrence: US)
  Receive Date: 20190107
  Receipt Date: 20190108
  Transmission Date: 20190417
  Serious: No
  Sender: FDA-Public Use
  Company Number: US-BRISTOL-MYERS SQUIBB COMPANY-BMS-2019-000565

PATIENT
  Age: 69 Year
  Sex: Female
  Weight: 168 kg

DRUGS (1)
  1. ABATACEPT [Suspect]
     Active Substance: ABATACEPT
     Indication: RHEUMATOID ARTHRITIS
     Dosage: 125 MG, QWK
     Route: 058
     Dates: start: 20181027

REACTIONS (3)
  - Infection [Unknown]
  - Arthropod bite [Unknown]
  - Erythema [Unknown]

NARRATIVE: CASE EVENT DATE: 20181230
